FAERS Safety Report 21485107 (Version 1)
Quarter: 2022Q4

REPORT INFORMATION
  Report Type: Spontaneous
  Country: US (occurrence: None)
  Receive Date: 20221019
  Receipt Date: 20221019
  Transmission Date: 20230113
  Serious: No
  Sender: FDA-Public Use
  Company Number: None

PATIENT
  Age: 70 Year
  Sex: Male
  Weight: 85.5 kg

DRUGS (3)
  1. NIVOLUMAB\RELATLIMAB-RMBW [Suspect]
     Active Substance: NIVOLUMAB\RELATLIMAB-RMBW
     Indication: Metastatic malignant melanoma
     Dosage: FREQUENCY : MONTHLY;?
     Route: 041
     Dates: start: 20220830, end: 20221004
  2. ATORVASTATIN [Concomitant]
     Active Substance: ATORVASTATIN
  3. TAMSULOSIN [Concomitant]
     Active Substance: TAMSULOSIN

REACTIONS (6)
  - Dyspnoea [None]
  - Dysphagia [None]
  - Urinary incontinence [None]
  - Myocarditis [None]
  - Alanine aminotransferase increased [None]
  - Aspartate aminotransferase increased [None]

NARRATIVE: CASE EVENT DATE: 20221004
